FAERS Safety Report 8349643-3 (Version None)
Quarter: 2012Q2

REPORT INFORMATION
  Report Type: 
  Country: None (occurrence: None)
  Receive Date: 20120510
  Receipt Date: 20120502
  Transmission Date: 20120825
  Serious: Yes (Other)
  Sender: FDA-Public Use
  Company Number: US-PFIZER INC-2012090019

PATIENT
  Sex: Female
  Weight: 76.19 kg

DRUGS (5)
  1. VENLAFAXINE HCL [Suspect]
     Indication: ANXIETY
     Dosage: 150 MG, DAILY
  2. MOTRIN [Suspect]
     Indication: PAIN
     Dosage: 800 MG, AS NEEDED
  3. CYTOMEL [Concomitant]
     Indication: THYROID DISORDER
     Dosage: 1 UG, 2X/DAY
  4. MOTRIN [Suspect]
     Indication: POLYMYALGIA RHEUMATICA
  5. VENLAFAXINE HCL [Suspect]
     Indication: DEPRESSION

REACTIONS (8)
  - FATIGUE [None]
  - ACTIVITIES OF DAILY LIVING IMPAIRED [None]
  - ANXIETY [None]
  - MOBILITY DECREASED [None]
  - NAUSEA [None]
  - DRUG INEFFECTIVE [None]
  - EMOTIONAL DISORDER [None]
  - DEPRESSION [None]
